FAERS Safety Report 5145141-9 (Version None)
Quarter: 2006Q4

REPORT INFORMATION
  Report Type: 
  Country: None (occurrence: None)
  Receive Date: 20061107
  Receipt Date: 20061026
  Transmission Date: 20070319
  Serious: Yes (Hospitalization)
  Sender: FDA-Public Use
  Company Number: FR-ELI_LILLY_AND_COMPANY-FR200610004798

PATIENT
  Age: 76 Year
  Sex: Female

DRUGS (10)
  1. FORTEO [Suspect]
     Indication: OSTEOPOROSIS
     Dosage: 20 UG, DAILY (1/D)
     Route: 058
     Dates: start: 20050524, end: 20061011
  2. FORTEO [Suspect]
     Dosage: 20 UG, DAILY (1/D)
     Route: 058
     Dates: start: 20061020
  3. TRIATEC [Concomitant]
  4. HYPERIUM [Concomitant]
  5. SECTRAL [Concomitant]
  6. VASTAREL [Concomitant]
  7. DIFFU K [Concomitant]
  8. FUROSEMIDE [Concomitant]
  9. OGAST [Concomitant]
  10. RIVOTRIL [Concomitant]
     Dosage: 2 GTT, EACH EVENING

REACTIONS (2)
  - GALLBLADDER DISORDER [None]
  - MALAISE [None]
